FAERS Safety Report 7738685-4 (Version None)
Quarter: 2011Q3

REPORT INFORMATION
  Report Type: 
  Country: None (occurrence: None)
  Receive Date: 20110908
  Receipt Date: 20110906
  Transmission Date: 20111222
  Serious: No
  Sender: FDA-Public Use
  Company Number: US-PFIZER INC-2011209024

PATIENT
  Sex: Male

DRUGS (3)
  1. EXCEDRIN (MIGRAINE) [Suspect]
     Dosage: UNK
  2. ADVIL LIQUI-GELS [Suspect]
     Indication: TOOTHACHE
     Dosage: UNK
  3. MOTRIN [Suspect]
     Dosage: UNK

REACTIONS (6)
  - RHINORRHOEA [None]
  - LACRIMATION INCREASED [None]
  - SNEEZING [None]
  - COUGH [None]
  - UNEVALUABLE EVENT [None]
  - NASAL DISCOMFORT [None]
